FAERS Safety Report 25736657 (Version 1)
Quarter: 2025Q3

REPORT INFORMATION
  Report Type: Spontaneous
  Country: EU (occurrence: EU)
  Receive Date: 20250828
  Receipt Date: 20250828
  Transmission Date: 20251020
  Serious: Yes (Hospitalization)
  Sender: MYLAN
  Company Number: None

PATIENT
  Age: 58 Year
  Sex: Male
  Weight: 72 kg

DRUGS (8)
  1. ARIPIPRAZOLE [Suspect]
     Active Substance: ARIPIPRAZOLE
     Indication: Schizophrenia
     Dosage: 5 MILLIGRAM, QD (INTRODUCED AT 5 MG ON 08-JUL-25 THEN INCREASED TO 10 MG ON 16-JUL)
     Dates: start: 20250708, end: 20250715
  2. ARIPIPRAZOLE [Suspect]
     Active Substance: ARIPIPRAZOLE
     Dosage: 5 MILLIGRAM, QD (INTRODUCED AT 5 MG ON 08-JUL-25 THEN INCREASED TO 10 MG ON 16-JUL)
     Dates: start: 20250708, end: 20250715
  3. ARIPIPRAZOLE [Suspect]
     Active Substance: ARIPIPRAZOLE
     Dosage: 5 MILLIGRAM, QD (INTRODUCED AT 5 MG ON 08-JUL-25 THEN INCREASED TO 10 MG ON 16-JUL)
     Route: 048
     Dates: start: 20250708, end: 20250715
  4. ARIPIPRAZOLE [Suspect]
     Active Substance: ARIPIPRAZOLE
     Dosage: 5 MILLIGRAM, QD (INTRODUCED AT 5 MG ON 08-JUL-25 THEN INCREASED TO 10 MG ON 16-JUL)
     Route: 048
     Dates: start: 20250708, end: 20250715
  5. ARIPIPRAZOLE [Suspect]
     Active Substance: ARIPIPRAZOLE
     Dosage: 10 MILLIGRAM, QD (INTRODUCED AT 5 MG ON 08-JUL-25 THEN INCREASED TO 10 MG ON 16-JUL)
     Dates: start: 20250716, end: 20250722
  6. ARIPIPRAZOLE [Suspect]
     Active Substance: ARIPIPRAZOLE
     Dosage: 10 MILLIGRAM, QD (INTRODUCED AT 5 MG ON 08-JUL-25 THEN INCREASED TO 10 MG ON 16-JUL)
     Dates: start: 20250716, end: 20250722
  7. ARIPIPRAZOLE [Suspect]
     Active Substance: ARIPIPRAZOLE
     Dosage: 10 MILLIGRAM, QD (INTRODUCED AT 5 MG ON 08-JUL-25 THEN INCREASED TO 10 MG ON 16-JUL)
     Route: 048
     Dates: start: 20250716, end: 20250722
  8. ARIPIPRAZOLE [Suspect]
     Active Substance: ARIPIPRAZOLE
     Dosage: 10 MILLIGRAM, QD (INTRODUCED AT 5 MG ON 08-JUL-25 THEN INCREASED TO 10 MG ON 16-JUL)
     Route: 048
     Dates: start: 20250716, end: 20250722

REACTIONS (1)
  - Pulmonary embolism [Recovering/Resolving]

NARRATIVE: CASE EVENT DATE: 20250720
